FAERS Safety Report 21713382 (Version 5)
Quarter: 2024Q2

REPORT INFORMATION
  Report Type: Spontaneous
  Country: PT (occurrence: None)
  Receive Date: 20221212
  Receipt Date: 20240530
  Transmission Date: 20240716
  Serious: Yes (Life-Threatening, Hospitalization, Other)
  Sender: FDA-Public Use
  Company Number: PT-Orion Corporation ORION PHARMA-ENTC2022-0243

PATIENT
  Age: 64 Year
  Sex: Female

DRUGS (11)
  1. CARBIDOPA\ENTACAPONE\LEVODOPA [Suspect]
     Active Substance: CARBIDOPA\ENTACAPONE\LEVODOPA
     Indication: Product used for unknown indication
     Dosage: STRENGTH: LEVODOPA-CARBIDOPA-ENTACAPONE: 200-50-200MG?INGESTED 50 TABLETS
  2. BENZODIAZEPINE [Suspect]
     Active Substance: BENZODIAZEPINE
     Indication: Product used for unknown indication
  3. ALCOHOL [Suspect]
     Active Substance: ALCOHOL
     Indication: Product used for unknown indication
  4. ALENDRONIC ACID [Concomitant]
     Active Substance: ALENDRONIC ACID
  5. BISOPROLOL [Concomitant]
     Active Substance: BISOPROLOL\BISOPROLOL FUMARATE
  6. VENLAFAXINE [Concomitant]
     Active Substance: VENLAFAXINE HYDROCHLORIDE
  7. CLOBAZAM [Concomitant]
     Active Substance: CLOBAZAM
  8. ESOMEPRAZOLE [Concomitant]
     Active Substance: ESOMEPRAZOLE
  9. MONTELUKAST [Concomitant]
     Active Substance: MONTELUKAST SODIUM
  10. OXYBUTYNIN [Concomitant]
     Active Substance: OXYBUTYNIN\OXYBUTYNIN CHLORIDE
  11. PREGABALIN [Concomitant]
     Active Substance: PREGABALIN

REACTIONS (12)
  - Intentional overdose [Recovering/Resolving]
  - Toxicity to various agents [Recovering/Resolving]
  - Mydriasis [Recovering/Resolving]
  - Speech disorder [Recovering/Resolving]
  - Psychomotor hyperactivity [Recovering/Resolving]
  - Hallucination, visual [Recovering/Resolving]
  - Tachycardia [Recovering/Resolving]
  - Chromaturia [Recovering/Resolving]
  - Jaundice [Recovering/Resolving]
  - Depression [Recovered/Resolved]
  - Parkinsonism [Recovered/Resolved]
  - Hypotension [Recovering/Resolving]
